FAERS Safety Report 9026640 (Version 1)
Quarter: 2013Q1

REPORT INFORMATION
  Report Type: Spontaneous
  Country: FR (occurrence: FR)
  Receive Date: 20130123
  Receipt Date: 20130123
  Transmission Date: 20140127
  Serious: Yes (Other)
  Sender: FDA-Public Use
  Company Number: FR-ABBOTT-13P-056-1039355-00

PATIENT
  Age: 52 Year
  Sex: Female

DRUGS (6)
  1. DEPAKOTE [Suspect]
     Indication: PRODUCT USED FOR UNKNOWN INDICATION
     Dosage: 500 MILLIGRAM(S); DAILY
     Route: 048
     Dates: start: 20121022
  2. LEPTICUR [Suspect]
     Indication: PRODUCT USED FOR UNKNOWN INDICATION
     Dosage: 10 MILLIGRAM(S); TWICE A DAY
     Route: 048
     Dates: start: 20121022
  3. QUETIAPINE [Suspect]
     Indication: PRODUCT USED FOR UNKNOWN INDICATION
     Dosage: 600 MILLIGRAM(S); DAILY
     Route: 048
     Dates: start: 20121022, end: 20121023
  4. QUETIAPINE [Suspect]
     Route: 048
     Dates: start: 20121023, end: 20121023
  5. ABILIFY [Suspect]
     Indication: PRODUCT USED FOR UNKNOWN INDICATION
     Dosage: 5 MILLIGRAM(S); DAILY
     Route: 048
     Dates: start: 20121022, end: 20121024
  6. LAROXYL [Suspect]
     Indication: PRODUCT USED FOR UNKNOWN INDICATION
     Dosage: 25 MILLIGRAM(S); DAILY
     Route: 048
     Dates: start: 20121022

REACTIONS (3)
  - Chest discomfort [Unknown]
  - Tachycardia [Unknown]
  - Tremor [Unknown]
